FAERS Safety Report 7741322-6 (Version None)
Quarter: 2011Q3

REPORT INFORMATION
  Report Type: 
  Country: None (occurrence: None)
  Receive Date: 20110909
  Receipt Date: 20110207
  Transmission Date: 20111222
  Serious: No
  Sender: FDA-Public Use
  Company Number: US-BAYER-2011-012736

PATIENT
  Age: 37 Year
  Sex: Female

DRUGS (1)
  1. MIRENA [Suspect]
     Indication: CONTRACEPTION
     Dosage: 20 MCG/24HR, CONT
     Route: 015
     Dates: start: 20100901

REACTIONS (9)
  - VISION BLURRED [None]
  - IRRITABILITY [None]
  - ACNE [None]
  - METRORRHAGIA [None]
  - LIBIDO DECREASED [None]
  - DRY EYE [None]
  - FEELING ABNORMAL [None]
  - ALOPECIA [None]
  - MEMORY IMPAIRMENT [None]
